FAERS Safety Report 11109169 (Version 2)
Quarter: 2015Q2

REPORT INFORMATION
  Report Type: Spontaneous
  Country: US (occurrence: None)
  Receive Date: 20150511
  Receipt Date: 20150514
  Transmission Date: 20150821
  Serious: Yes (Hospitalization)
  Sender: FDA-Public Use
  Company Number: US2015052842

PATIENT
  Age: 42 Year
  Sex: Female
  Weight: 133.3 kg

DRUGS (2)
  1. ABACAVIRSULPHATE+DOLUTEGRAVIR+LAMIVUDINE(ABACAVIR SULPHATE, DOLUTEGRAVIR, LAMIVUDINE) TABLET [Suspect]
     Active Substance: ABACAVIR SULFATE\DOLUTEGRAVIR SODIUM\LAMIVUDINE
     Indication: HIV INFECTION
     Dosage: 1 UNK, QD, ORAL
     Route: 048
     Dates: start: 20140805
  2. ONDANSETRON [Concomitant]
     Active Substance: ONDANSETRON

REACTIONS (2)
  - Acute kidney injury [None]
  - HIV infection [None]

NARRATIVE: CASE EVENT DATE: 20150405
